FAERS Safety Report 8163678-5 (Version None)
Quarter: 2012Q1

REPORT INFORMATION
  Report Type: 
  Country: None (occurrence: None)
  Receive Date: 20120224
  Receipt Date: 20120217
  Transmission Date: 20120608
  Serious: Yes (Hospitalization)
  Sender: FDA-Public Use
  Company Number: JP-JNJFOC-20120101969

PATIENT
  Sex: Female
  Weight: 58 kg

DRUGS (16)
  1. METHOTREXATE [Concomitant]
     Route: 048
     Dates: start: 20100501, end: 20100719
  2. FOLIC ACID [Concomitant]
  3. FAMOTIDINE [Concomitant]
  4. PREDNISOLONE [Concomitant]
     Route: 048
     Dates: start: 20100730, end: 20101020
  5. PREDNISOLONE [Concomitant]
     Route: 048
     Dates: start: 20101021, end: 20111101
  6. PREDNISOLONE [Concomitant]
     Route: 048
     Dates: start: 20111124
  7. PREDNISOLONE [Concomitant]
     Route: 048
     Dates: start: 20101118, end: 20111123
  8. PREDNISOLONE [Concomitant]
     Route: 048
     Dates: start: 20100401, end: 20100501
  9. METHOTREXATE [Concomitant]
     Route: 048
     Dates: start: 20100401, end: 20100501
  10. METHOTREXATE [Concomitant]
     Route: 048
     Dates: start: 20100730
  11. CELECOXIB [Concomitant]
  12. TACROLIMUS [Concomitant]
     Route: 048
     Dates: start: 20111124, end: 20111208
  13. SIMPONI [Suspect]
     Indication: RHEUMATOID ARTHRITIS
     Route: 058
     Dates: start: 20111124
  14. PREDNISOLONE [Concomitant]
     Route: 048
     Dates: start: 20100501, end: 20100629
  15. TACROLIMUS [Concomitant]
     Route: 048
     Dates: start: 20111209
  16. PREDNISOLONE [Concomitant]
     Route: 048
     Dates: start: 20111101

REACTIONS (3)
  - PULPITIS DENTAL [None]
  - DIARRHOEA [None]
  - VOMITING [None]
